FAERS Safety Report 17203372 (Version 1)
Quarter: 2019Q4

REPORT INFORMATION
  Report Type: Spontaneous
  Country: GR (occurrence: GR)
  Receive Date: 20191226
  Receipt Date: 20191226
  Transmission Date: 20200122
  Serious: Yes (Death, Hospitalization)
  Sender: FDA-Public Use
  Company Number: GR-HONG KONG KING-FRIEND INDUSTRIAL COMPANY-2019NKF00041

PATIENT
  Age: 74 Year
  Sex: Male

DRUGS (11)
  1. HEPARIN SODIUM. [Suspect]
     Active Substance: HEPARIN SODIUM
     Dosage: 5000 U, ONCE, GIVEN DURING SECOND ATTEMPT AT PCI
     Route: 065
  2. CLOPIDOGREL [Concomitant]
     Active Substance: CLOPIDOGREL BISULFATE
     Dosage: 75 MG
     Route: 065
  3. ENOXAPARIN [Suspect]
     Active Substance: ENOXAPARIN
     Dosage: 2000 UNK, 2X/DAY, STARTED 24 HOURS AFTER SURGERY
     Route: 058
  4. FONDAPARINUX [Concomitant]
     Active Substance: FONDAPARINUX
     Dosage: 1.5 MG, 1X/DAY, STARTED 7TH DAY AFTER SURGERY
     Route: 058
  5. UNSPECIFIED STATIN [Concomitant]
     Route: 065
  6. HEPARIN SODIUM. [Suspect]
     Active Substance: HEPARIN SODIUM
     Dosage: 5000 U, GIVEN IN EMERGENCY DEPARTMENT
     Route: 042
  7. FONDAPARINUX [Concomitant]
     Active Substance: FONDAPARINUX
     Dosage: 2.5 MG, 1X/DAY
     Route: 058
  8. UNSPECIFIED BETA BLOCKER [Concomitant]
     Active Substance: UNSPECIFIED INGREDIENT
     Route: 065
  9. HEPARIN SODIUM. [Suspect]
     Active Substance: HEPARIN SODIUM
     Dosage: 5000 UNK, GIVEN DURING PCI
     Route: 042
  10. ASPIRIN. [Concomitant]
     Active Substance: ASPIRIN
     Dosage: 100 MG
     Route: 065
  11. UNSPECIFIED ANGIOTENSIN-CONVERTING ENZYME INHIBITOR [Concomitant]
     Route: 065

REACTIONS (6)
  - Ischaemic stroke [Not Recovered/Not Resolved]
  - Renal failure [Not Recovered/Not Resolved]
  - Ejection fraction decreased [Not Recovered/Not Resolved]
  - Heparin-induced thrombocytopenia [Fatal]
  - Vascular stent thrombosis [Not Recovered/Not Resolved]
  - Ventricular fibrillation [Not Recovered/Not Resolved]
